FAERS Safety Report 16415572 (Version 1)
Quarter: 2019Q2

REPORT INFORMATION
  Report Type: Spontaneous
  Country: US (occurrence: US)
  Receive Date: 20190611
  Receipt Date: 20190611
  Transmission Date: 20190711
  Serious: No
  Sender: FDA-Public Use
  Company Number: US-PFIZER INC-2019080072

PATIENT
  Age: 49 Year
  Sex: Female

DRUGS (1)
  1. ZOLOFT [Suspect]
     Active Substance: SERTRALINE HYDROCHLORIDE
     Indication: AFFECTIVE DISORDER
     Dosage: 200 MG, 1X/DAY (TAKE 2 TABLETS BY MOUTH ONCE A DAY )
     Route: 048

REACTIONS (3)
  - Off label use [Unknown]
  - Headache [Unknown]
  - Product use in unapproved indication [Unknown]
